FAERS Safety Report 9255834 (Version 3)
Quarter: 2013Q4

REPORT INFORMATION
  Report Type: Report from Study
  Country: JP (occurrence: JP)
  Receive Date: 20130425
  Receipt Date: 20131204
  Transmission Date: 20140711
  Serious: Yes (Other)
  Sender: FDA-Public Use
  Company Number: JP-VERTEX PHARMACEUTICALS INC.-2013-005368

PATIENT
  Age: 61 Year
  Sex: Male

DRUGS (7)
  1. VX-950 (TELAPREVIR) [Suspect]
     Indication: CHRONIC HEPATITIS C
     Dosage: 2250 MG, QD
     Route: 048
     Dates: start: 20120116, end: 20120326
  2. REBETOL [Suspect]
     Indication: CHRONIC HEPATITIS C
     Dosage: 800 MG, QD
     Route: 048
     Dates: start: 20120116, end: 20120304
  3. REBETOL [Suspect]
     Dosage: 600 MG, QD
     Route: 048
     Dates: start: 20120305, end: 20120401
  4. REBETOL [Suspect]
     Dosage: 400 MG, QD
     Route: 048
     Dates: start: 20120402, end: 20120702
  5. PEGINTRON [Suspect]
     Indication: CHRONIC HEPATITIS C
     Dosage: 1.5 ?G/KG, QW
     Route: 058
     Dates: start: 20120116, end: 20120702
  6. LORFENAMIN [Suspect]
     Indication: PYREXIA
     Dosage: 60 MG, QD/PRN
     Route: 048
     Dates: start: 20120116, end: 20120311
  7. EPADEL-S [Concomitant]
     Dosage: 1800 MG, QD
     Route: 048
     Dates: start: 20120116

REACTIONS (1)
  - Toxic skin eruption [Recovered/Resolved]
